FAERS Safety Report 5936852-3 (Version None)
Quarter: 2008Q4

REPORT INFORMATION
  Report Type: 
  Country: None (occurrence: None)
  Receive Date: 20081031
  Receipt Date: 20081021
  Transmission Date: 20090506
  Serious: Yes (Other)
  Sender: FDA-Public Use
  Company Number: JP-RANBAXY-2008RR-18853

PATIENT
  Age: 32 Year
  Sex: Female

DRUGS (6)
  1. MELOXICAM [Suspect]
  2. PREDNISOLONE [Suspect]
     Dosage: 40 MG, QD
     Route: 048
  3. PREDNISOLONE [Suspect]
     Dosage: 50 MG, QD
  4. METHYLPREDNISOLONE 16MG TAB [Suspect]
     Dosage: 1 G, QD
     Route: 042
  5. CYCLOSPORINE [Concomitant]
     Dosage: 150 MG, QD
     Route: 048
  6. PREDNISOLONE [Concomitant]
     Dosage: 4 MG, QD

REACTIONS (1)
  - DRUG INEFFECTIVE [None]
